FAERS Safety Report 16246534 (Version 1)
Quarter: 2019Q2

REPORT INFORMATION
  Report Type: Report from Study
  Country: None (occurrence: US)
  Receive Date: 20190427
  Receipt Date: 20190427
  Transmission Date: 20190711
  Serious: Yes (Hospitalization, Other)
  Sender: FDA-Public Use
  Company Number: US-ABBVIE-19K-163-2739624-00

PATIENT
  Age: 62 Year
  Sex: Male

DRUGS (11)
  1. TURMERIC [Concomitant]
     Active Substance: HERBALS\TURMERIC
     Indication: PROSTATE CANCER
  2. PRILOSEC [Concomitant]
     Active Substance: OMEPRAZOLE MAGNESIUM
     Indication: PRODUCT USED FOR UNKNOWN INDICATION
  3. OREGANO OIL [Concomitant]
     Indication: PROSTATE CANCER
  4. VITAMIN C [Concomitant]
     Active Substance: ASCORBIC ACID
     Indication: PROSTATE CANCER
  5. XGEVA [Concomitant]
     Active Substance: DENOSUMAB
     Indication: PRODUCT USED FOR UNKNOWN INDICATION
  6. TRELSTAR [Concomitant]
     Active Substance: TRIPTORELIN PAMOATE
     Indication: PROSTATE CANCER
  7. VENCLEXTA [Suspect]
     Active Substance: VENETOCLAX
     Indication: CHRONIC LYMPHOCYTIC LEUKAEMIA
     Route: 048
     Dates: start: 20180710, end: 20190415
  8. XTANDI [Concomitant]
     Active Substance: ENZALUTAMIDE
     Indication: PROSTATE CANCER
  9. PREDNISONE. [Concomitant]
     Active Substance: PREDNISONE
  10. CALCIUM [Concomitant]
     Active Substance: CALCIUM
     Indication: PRODUCT USED FOR UNKNOWN INDICATION
  11. PREDNISONE. [Concomitant]
     Active Substance: PREDNISONE
     Indication: PRODUCT USED FOR UNKNOWN INDICATION

REACTIONS (13)
  - Bursitis [Unknown]
  - Headache [Recovered/Resolved]
  - Respiratory distress [Recovering/Resolving]
  - Pain [Unknown]
  - Asthenia [Not Recovered/Not Resolved]
  - Myalgia [Unknown]
  - Joint neoplasm [Unknown]
  - Oxygen saturation decreased [Unknown]
  - Metastatic neoplasm [Unknown]
  - Dyspnoea [Not Recovered/Not Resolved]
  - Abdominal discomfort [Recovered/Resolved]
  - Pain [Not Recovered/Not Resolved]
  - Muscle atrophy [Not Recovered/Not Resolved]

NARRATIVE: CASE EVENT DATE: 2019
